FAERS Safety Report 15711924 (Version 2)
Quarter: 2019Q1

REPORT INFORMATION
  Report Type: Report from Study
  Country: ES (occurrence: ES)
  Receive Date: 20181212
  Receipt Date: 20190105
  Transmission Date: 20190417
  Serious: Yes (Other)
  Sender: FDA-Public Use
  Company Number: ES-ACCORD-095905

PATIENT
  Age: 53 Year
  Sex: Female
  Weight: 57 kg

DRUGS (6)
  1. FLUOROURACIL. [Suspect]
     Active Substance: FLUOROURACIL
     Indication: COLORECTAL CANCER METASTATIC
     Route: 040
     Dates: start: 20150414, end: 20150414
  2. PRIMAR [Concomitant]
     Dosage: STRENGTH:10 MG / 2 ML
     Route: 065
     Dates: start: 20150416
  3. IRINOTECAN [Suspect]
     Active Substance: IRINOTECAN
     Indication: COLORECTAL CANCER METASTATIC
     Route: 041
     Dates: start: 20150414, end: 20150414
  4. ZALTRAP [Suspect]
     Active Substance: ZIV-AFLIBERCEPT
     Indication: COLORECTAL CANCER METASTATIC
     Route: 041
     Dates: start: 20150331, end: 20150331
  5. ENALAPRIL [Concomitant]
     Active Substance: ENALAPRIL
     Route: 065
     Dates: start: 20150415
  6. LEUCOVORIN. [Suspect]
     Active Substance: LEUCOVORIN
     Indication: COLORECTAL CANCER METASTATIC
     Route: 041
     Dates: start: 20150331, end: 20150331

REACTIONS (6)
  - Hypertension [Recovered/Resolved]
  - Dysphonia [Recovered/Resolved]
  - Rectal haemorrhage [Not Recovered/Not Resolved]
  - Herpes ophthalmic [Recovered/Resolved]
  - Epistaxis [Recovered/Resolved]
  - Back pain [Recovered/Resolved]

NARRATIVE: CASE EVENT DATE: 20150417
